FAERS Safety Report 21458249 (Version 1)
Quarter: 2022Q4

REPORT INFORMATION
  Report Type: Report from Study
  Country: US (occurrence: US)
  Receive Date: 20221014
  Receipt Date: 20221014
  Transmission Date: 20230112
  Serious: No
  Sender: FDA-Public Use
  Company Number: US-ABBVIE-4152090

PATIENT
  Sex: Male

DRUGS (1)
  1. SKYRIZI [Suspect]
     Active Substance: RISANKIZUMAB-RZAA
     Indication: Product used for unknown indication
     Route: 058

REACTIONS (5)
  - Influenza like illness [Not Recovered/Not Resolved]
  - Pyrexia [Unknown]
  - Headache [Unknown]
  - Pain [Unknown]
  - Dizziness [Unknown]
